FAERS Safety Report 18009316 (Version 2)
Quarter: 2020Q3

REPORT INFORMATION
  Report Type: Report from Study
  Country: AT (occurrence: AT)
  Receive Date: 20200710
  Receipt Date: 20200812
  Transmission Date: 20201103
  Serious: Yes (Death, Hospitalization)
  Sender: FDA-Public Use
  Company Number: AT-CELGENEUS-AUT-20200701907

PATIENT
  Age: 78 Year
  Sex: Male
  Weight: 71 kg

DRUGS (4)
  1. AMLODIPINE [Concomitant]
     Active Substance: AMLODIPINE BESYLATE
     Indication: HYPERTENSION
     Dosage: 10 MILLIGRAM
     Route: 065
     Dates: end: 20200717
  2. ENALAPRIL [Concomitant]
     Active Substance: ENALAPRIL
     Indication: HYPERTENSION
     Dosage: 20 MILLIGRAM
     Route: 065
     Dates: end: 20200717
  3. ENASIDENIB [Suspect]
     Active Substance: ENASIDENIB
     Indication: ACUTE MYELOID LEUKAEMIA
     Dosage: 100 MILLIGRAM
     Route: 048
     Dates: start: 20200624, end: 20200708
  4. EUTHYROX [Concomitant]
     Active Substance: LEVOTHYROXINE SODIUM
     Indication: THYROID CANCER
     Dosage: 175 MICROGRAM
     Route: 065
     Dates: end: 20200717

REACTIONS (1)
  - Pneumonia [Fatal]

NARRATIVE: CASE EVENT DATE: 20200708
